FAERS Safety Report 4496131-0 (Version None)
Quarter: 2004Q4

REPORT INFORMATION
  Report Type: 
  Country: None (occurrence: None)
  Receive Date: 20041108
  Receipt Date: 20041029
  Transmission Date: 20050328
  Serious: Yes (Hospitalization, Disabling)
  Sender: FDA-Public Use
  Company Number: US-MERCK-0411USA00039

PATIENT
  Age: 55 Year
  Sex: Female

DRUGS (8)
  1. VIOXX [Suspect]
     Indication: ARTHRITIS
     Route: 048
     Dates: start: 20010101
  2. LIPITOR [Concomitant]
     Route: 065
  3. TOPROL-XL [Concomitant]
     Route: 065
  4. ZOLOFT [Concomitant]
     Route: 065
  5. LISINOPRIL [Concomitant]
     Route: 065
  6. PLAVIX [Concomitant]
     Route: 065
  7. TRICOR [Concomitant]
     Route: 065
  8. ASPIRIN [Concomitant]
     Route: 065

REACTIONS (1)
  - MYOCARDIAL INFARCTION [None]
